FAERS Safety Report 7916978-5 (Version None)
Quarter: 2011Q4

REPORT INFORMATION
  Report Type: 
  Country: None (occurrence: None)
  Receive Date: 20111116
  Receipt Date: 20111116
  Transmission Date: 20120403
  Serious: Yes (Death)
  Sender: FDA-Public Use
  Company Number: None

PATIENT
  Age: 13 Year
  Sex: Female
  Weight: 44.452 kg

DRUGS (6)
  1. CITALOPRAM [Concomitant]
     Indication: SUICIDAL IDEATION
     Dosage: ONE TAB
     Route: 048
     Dates: start: 20090616
  2. CITALOPRAM [Concomitant]
     Indication: DEPRESSION
     Dosage: ONE TAB
     Route: 048
     Dates: start: 20090616
  3. CITALOPRAM HYDROBROMIDE [Suspect]
     Indication: OBSESSIVE-COMPULSIVE DISORDER
     Dosage: 1/2 TAB
     Route: 048
     Dates: start: 20090603, end: 20090615
  4. CITALOPRAM HYDROBROMIDE [Suspect]
     Indication: BIPOLAR DISORDER
     Dosage: 1/2 TAB
     Route: 048
     Dates: start: 20090603, end: 20090615
  5. CITALOPRAM HYDROBROMIDE [Suspect]
     Indication: MAJOR DEPRESSION
     Dosage: 1/2 TAB
     Route: 048
     Dates: start: 20090603, end: 20090615
  6. CITALOPRAM HYDROBROMIDE [Suspect]
     Indication: DYSPHORIA
     Dosage: 1/2 TAB
     Route: 048
     Dates: start: 20090603, end: 20090615

REACTIONS (2)
  - COMPLETED SUICIDE [None]
  - ASPHYXIA [None]
